FAERS Safety Report 15988078 (Version 1)
Quarter: 2019Q1

REPORT INFORMATION
  Report Type: Spontaneous
  Country: NL (occurrence: NL)
  Receive Date: 20190220
  Receipt Date: 20190220
  Transmission Date: 20190418
  Serious: Yes (Other)
  Sender: FDA-Public Use
  Company Number: NL-RICON PHARMA, LLC-RIC201902-000106

PATIENT
  Age: 66 Year
  Sex: Male

DRUGS (2)
  1. LIDOCAINE. [Suspect]
     Active Substance: LIDOCAINE
     Indication: LOCAL ANAESTHESIA
     Dosage: 200 MILLIGRAM
  2. BUPIVACAINE. [Suspect]
     Active Substance: BUPIVACAINE
     Indication: LOCAL ANAESTHESIA
     Dosage: 150 MILLIGRAM

REACTIONS (5)
  - Bradycardia [Unknown]
  - Systemic toxicity [Unknown]
  - Haemodynamic instability [Unknown]
  - Myocardial ischaemia [Unknown]
  - Hypotension [Unknown]
